FAERS Safety Report 9932317 (Version 2)
Quarter: 2014Q1

REPORT INFORMATION
  Report Type: Spontaneous
  Country: US (occurrence: US)
  Receive Date: 20140228
  Receipt Date: 20140228
  Transmission Date: 20141002
  Serious: No
  Sender: FDA-Public Use
  Company Number: US-ABBVIE-13P-163-1136582-00

PATIENT
  Age: 55 Year
  Sex: Male
  Weight: 90.8 kg

DRUGS (4)
  1. ANDROGEL [Suspect]
     Indication: BLOOD TESTOSTERONE DECREASED
     Dates: start: 20130812
  2. OXYCODONE [Concomitant]
     Indication: PAIN
  3. BLOOD PRESSURE MEDICATION [Concomitant]
     Indication: HYPERTENSION
  4. INDIGESTION MEDICATION [Concomitant]
     Indication: DYSPEPSIA

REACTIONS (6)
  - Cough [Recovering/Resolving]
  - Hyperhidrosis [Recovering/Resolving]
  - Pulmonary congestion [Recovering/Resolving]
  - Sensation of heaviness [Recovering/Resolving]
  - Bronchitis [Recovering/Resolving]
  - Dysphonia [Not Recovered/Not Resolved]
